FAERS Safety Report 16444698 (Version 1)
Quarter: 2019Q3

REPORT INFORMATION
  Report Type: Spontaneous
  Country: US (occurrence: US)
  Receive Date: 20190618
  Receipt Date: 20190618
  Transmission Date: 20191004
  Serious: Yes (Hospitalization)
  Sender: FDA-Public Use
  Company Number: None

PATIENT
  Age: 18 Year
  Sex: Male
  Weight: 81 kg

DRUGS (1)
  1. CIPROFLOXACIN HCL 500 MG TAB [Suspect]
     Active Substance: CIPROFLOXACIN HYDROCHLORIDE
     Indication: WOUND INFECTION
     Dosage: ?          QUANTITY:20 TABLET(S);?
     Route: 048
     Dates: start: 20190604, end: 20190614

REACTIONS (9)
  - Vomiting [None]
  - Loss of personal independence in daily activities [None]
  - Mood altered [None]
  - Nausea [None]
  - Abdominal pain upper [None]
  - Insomnia [None]
  - Abdominal distension [None]
  - Constipation [None]
  - Dyspepsia [None]

NARRATIVE: CASE EVENT DATE: 20190612
